FAERS Safety Report 22145404 (Version 3)
Quarter: 2025Q3

REPORT INFORMATION
  Report Type: Report from Study
  Country: CL (occurrence: CL)
  Receive Date: 20230328
  Receipt Date: 20250714
  Transmission Date: 20251020
  Serious: Yes (Other)
  Sender: NOVARTIS
  Company Number: CL-002147023-NVSC2023CL069632

PATIENT
  Age: 63 Year
  Sex: Female

DRUGS (4)
  1. COSENTYX [Suspect]
     Active Substance: SECUKINUMAB
     Indication: Psoriatic arthropathy
     Dosage: 150 MG, QMO
     Route: 058
     Dates: start: 20220810
  2. COSENTYX [Suspect]
     Active Substance: SECUKINUMAB
     Dosage: 150 MG, QMO
     Route: 058
  3. COSENTYX [Suspect]
     Active Substance: SECUKINUMAB
     Route: 058
     Dates: start: 20230816
  4. COSENTYX [Suspect]
     Active Substance: SECUKINUMAB
     Route: 058
     Dates: start: 20250618

REACTIONS (8)
  - Hypothyroidism [Unknown]
  - Dysphonia [Unknown]
  - Dry throat [Unknown]
  - Throat clearing [Unknown]
  - Hypersensitivity [Unknown]
  - Nasopharyngitis [Recovered/Resolved]
  - Psoriasis [Unknown]
  - Memory impairment [Unknown]
